FAERS Safety Report 9766921 (Version 1)
Quarter: 2013Q4

REPORT INFORMATION
  Report Type: Spontaneous
  Country: US (occurrence: US)
  Receive Date: 20131217
  Receipt Date: 20131217
  Transmission Date: 20140711
  Serious: No
  Sender: FDA-Public Use
  Company Number: US-GLAXOSMITHKLINE-A1034408A

PATIENT
  Age: 66 Year
  Sex: Male

DRUGS (10)
  1. VOTRIENT [Suspect]
     Indication: RENAL CANCER
     Dosage: 200MG FOUR TIMES PER DAY
     Route: 048
  2. CALCIUM + D [Concomitant]
  3. PERCOCET [Concomitant]
  4. PHENERGAN [Concomitant]
  5. SENOKOT [Concomitant]
  6. COLACE [Concomitant]
     Dosage: 100MG CUMULATIVE DOSE
  7. ATIVAN [Concomitant]
  8. MEGESTROL ACETATE [Concomitant]
  9. NORVASC [Concomitant]
  10. COMPAZINE [Concomitant]

REACTIONS (10)
  - Nausea [Recovered/Resolved]
  - Vomiting [Unknown]
  - Headache [Unknown]
  - Drug administration error [Not Recovered/Not Resolved]
  - Blood pressure increased [Not Recovered/Not Resolved]
  - Decreased appetite [Recovering/Resolving]
  - Weight decreased [Not Recovered/Not Resolved]
  - Fatigue [Not Recovered/Not Resolved]
  - Asthenia [Not Recovered/Not Resolved]
  - Ill-defined disorder [Not Recovered/Not Resolved]
